FAERS Safety Report 10756192 (Version 3)
Quarter: 2015Q2

REPORT INFORMATION
  Report Type: Spontaneous
  Country: US (occurrence: US)
  Receive Date: 20150202
  Receipt Date: 20150416
  Transmission Date: 20150821
  Serious: Yes (Hospitalization)
  Sender: FDA-Public Use
  Company Number: US-PFIZER INC-2015040465

PATIENT
  Age: 54 Year
  Sex: Female
  Weight: 49 kg

DRUGS (5)
  1. DEXAMETHASONE W/NEOMYCIN,POLYMYXIN B [Concomitant]
     Indication: EYE INFECTION
     Dosage: 0.1 (NO UNIT PROVIDED), 1X/DAY
     Route: 047
     Dates: start: 20150120, end: 2015
  2. DOXYCYCLINE HYCLATE. [Concomitant]
     Active Substance: DOXYCYCLINE HYCLATE
     Dosage: 100 MG (1 CAPSULE), 3X/DAY
     Route: 048
     Dates: start: 20150120, end: 2015
  3. BREWER^S YEAST [Concomitant]
     Indication: NUTRITIONAL SUPPLEMENTATION
     Dosage: 3 DF, 2X/DAY (3 TABLETS IN THE MORNING AND 3 TABLETS IN THE EVENING)
  4. PREMPRO [Suspect]
     Active Substance: ESTROGENS, CONJUGATED\MEDROXYPROGESTERONE ACETATE
     Indication: HORMONE REPLACEMENT THERAPY
     Dosage: 1 DF (1 TABLET: 0.3MG/1.5MG), 1X/DAY (AT LUNCH TIME)
     Route: 048
     Dates: start: 20150127, end: 20150128
  5. DOXYCYCLINE HYCLATE. [Concomitant]
     Active Substance: DOXYCYCLINE HYCLATE
     Indication: EYE INFECTION
     Dosage: 200 MG, 1X/DAY
     Route: 048

REACTIONS (4)
  - Abdominal pain upper [Not Recovered/Not Resolved]
  - Nausea [Not Recovered/Not Resolved]
  - Vomiting [Unknown]
  - Feeling cold [Recovered/Resolved]

NARRATIVE: CASE EVENT DATE: 20150129
